FAERS Safety Report 5064491-8 (Version None)
Quarter: 2006Q3

REPORT INFORMATION
  Report Type: 
  Country: None (occurrence: None)
  Receive Date: 20060726
  Receipt Date: 20060712
  Transmission Date: 20061208
  Serious: Yes (Other)
  Sender: FDA-Public Use
  Company Number: 2006086678

PATIENT
  Age: 83 Year
  Sex: Female
  Weight: 48.9885 kg

DRUGS (5)
  1. AZITHROMYCIN [Suspect]
     Indication: BRONCHITIS
     Dosage: 500 MG (250 MG, 1 IN 1 D), ORAL
     Route: 048
     Dates: start: 20060116, end: 20060116
  2. XALATAN [Suspect]
     Indication: GLAUCOMA
  3. PREVACID [Concomitant]
  4. SYNTHROID [Concomitant]
  5. COSOPT [Concomitant]

REACTIONS (10)
  - ASTHENIA [None]
  - COUGH [None]
  - DIZZINESS [None]
  - DRUG EFFECT DECREASED [None]
  - DYSPNOEA [None]
  - HYPERHIDROSIS [None]
  - INTRAOCULAR PRESSURE INCREASED [None]
  - MALAISE [None]
  - NAUSEA [None]
  - VOMITING [None]
